FAERS Safety Report 6267549-0 (Version None)
Quarter: 2009Q3

REPORT INFORMATION
  Report Type: 
  Country: None (occurrence: None)
  Receive Date: 20090714
  Receipt Date: 20090709
  Transmission Date: 20100115
  Serious: Yes (Death, Hospitalization, Other)
  Sender: FDA-Public Use
  Company Number: PHHY2009BR28347

PATIENT
  Sex: Male

DRUGS (2)
  1. EXELON [Suspect]
     Indication: DEMENTIA ALZHEIMER'S TYPE
     Dosage: 1.5 MG PER DAY
     Route: 048
     Dates: start: 20010101
  2. EXELON [Suspect]
     Dosage: 3 MG
     Route: 048

REACTIONS (12)
  - AGITATION [None]
  - ATAXIA [None]
  - COGNITIVE DISORDER [None]
  - DEMENTIA ALZHEIMER'S TYPE [None]
  - DIABETES MELLITUS [None]
  - EATING DISORDER [None]
  - GASTROSTOMY [None]
  - INSOMNIA [None]
  - MEMORY IMPAIRMENT [None]
  - MULTI-ORGAN FAILURE [None]
  - PSYCHOTIC DISORDER [None]
  - RESPIRATORY DISORDER [None]
